FAERS Safety Report 17529182 (Version 1)
Quarter: 2020Q1

REPORT INFORMATION
  Report Type: Spontaneous
  Country: US (occurrence: US)
  Receive Date: 20200311
  Receipt Date: 20200311
  Transmission Date: 20200409
  Serious: Yes (Death)
  Sender: FDA-Public Use
  Company Number: NVSC2020US067523

PATIENT

DRUGS (8)
  1. IFOSFAMIDE. [Suspect]
     Active Substance: IFOSFAMIDE
     Dosage: 1800 MG/M2, 5QD (FOR OVER 1 HOUR)
     Route: 042
  2. ETOPOSIDE. [Suspect]
     Active Substance: ETOPOSIDE
     Indication: METASTASES TO BONE
     Dosage: 100 MG/M2, 5QD
     Route: 042
  3. CYCLOPHOSPHAMIDE. [Suspect]
     Active Substance: CYCLOPHOSPHAMIDE
     Indication: METASTASES TO BONE
     Dosage: 1200 MG/M2 (OVER 30 MIN)
     Route: 042
  4. IFOSFAMIDE. [Suspect]
     Active Substance: IFOSFAMIDE
     Indication: METASTASES TO BONE
     Dosage: 2200 MG/M2, 5QD (FOR OVER 1 HOUR)
     Route: 042
  5. VINCRISTINE [Suspect]
     Active Substance: VINCRISTINE
     Indication: METASTASES TO BONE
     Dosage: 1.5 MG/M2
     Route: 042
  6. FILGRASTIM [Suspect]
     Active Substance: FILGRASTIM
     Indication: METASTASES TO BONE
     Dosage: 5 MG/KG, QD
     Route: 058
  7. DOXORUBICIN [Suspect]
     Active Substance: DOXORUBICIN
     Indication: METASTASES TO BONE
     Dosage: 1.25 MG/M2
     Route: 042
  8. CYCLOPHOSPHAMIDE. [Suspect]
     Active Substance: CYCLOPHOSPHAMIDE
     Dosage: 2200 MG/M2 (OVER 30 MIN)
     Route: 042

REACTIONS (1)
  - Fungal sepsis [Fatal]
